FAERS Safety Report 4944721-0 (Version None)
Quarter: 2006Q1

REPORT INFORMATION
  Report Type: 
  Country: None (occurrence: None)
  Receive Date: 20060123
  Receipt Date: 20050913
  Transmission Date: 20060701
  Serious: Yes (Other)
  Sender: FDA-Public Use
  Company Number: PHEH2005US08311

PATIENT
  Age: 54 Year
  Sex: Female
  Weight: 81.6 kg

DRUGS (7)
  1. SANDOSTATIN LAR DEPOT(OCTRETIDE WITH POLY (D L-LACTIDE-CO-GLYCOLIDE)) [Suspect]
     Indication: CARCINOID SYNDROME
     Dosage: 20 MG, QMO, INTRAMUSCULAR
     Dates: start: 20030101, end: 20040101
  2. SANDOSTATIN [Suspect]
     Indication: CARCINOID SYNDROME
     Dates: start: 20030101, end: 20040101
  3. EXCEDRIN (MIGRAINE) [Suspect]
     Dosage: PRN
  4. NEXIUM [Concomitant]
  5. AMBIEN [Concomitant]
  6. LEXAPRO [Concomitant]
  7. DARVOCET-N 100 [Concomitant]

REACTIONS (1)
  - PERIPHERAL SENSORY NEUROPATHY [None]
